FAERS Safety Report 23656320 (Version 2)
Quarter: 2024Q1

REPORT INFORMATION
  Report Type: Report from Study
  Country: US (occurrence: US)
  Receive Date: 20240321
  Receipt Date: 20240322
  Transmission Date: 20240410
  Serious: No
  Sender: FDA-Public Use
  Company Number: US-JNJFOC-20240229228

PATIENT
  Age: 26 Year
  Sex: Male

DRUGS (2)
  1. STELARA [Suspect]
     Active Substance: USTEKINUMAB
     Indication: Crohn^s disease
     Route: 058
     Dates: start: 20231229
  2. STELARA [Suspect]
     Active Substance: USTEKINUMAB
     Route: 058
     Dates: start: 20240223

REACTIONS (4)
  - Drug ineffective [Unknown]
  - Accidental exposure to product [Unknown]
  - Device deployment issue [Unknown]
  - Underdose [Unknown]

NARRATIVE: CASE EVENT DATE: 20240201
